FAERS Safety Report 8445652-4 (Version None)
Quarter: 2012Q2

REPORT INFORMATION
  Report Type: 
  Country: None (occurrence: None)
  Receive Date: 20120618
  Receipt Date: 20120611
  Transmission Date: 20120825
  Serious: Yes (Life-Threatening, Hospitalization)
  Sender: FDA-Public Use
  Company Number: DK-JNJFOC-20120302050

PATIENT
  Sex: Male

DRUGS (4)
  1. REMICADE [Suspect]
     Indication: COLITIS ULCERATIVE
     Route: 042
     Dates: start: 20120101
  2. PREDNISOLONE [Concomitant]
     Dosage: FOR 1 WEEK HEREAFTER 50MG WITH REDUCTION TO 5MG PER WEEK TO 0.
     Route: 065
     Dates: start: 20111121
  3. PREDNISOLONE [Concomitant]
     Route: 065
     Dates: start: 20120202, end: 20120401
  4. REMICADE [Suspect]
     Route: 042
     Dates: start: 20111123, end: 20111207

REACTIONS (2)
  - ALVEOLITIS ALLERGIC [None]
  - DYSPNOEA [None]
